FAERS Safety Report 9173209 (Version 2)
Quarter: 2013Q2

REPORT INFORMATION
  Report Type: Report from Study
  Country: US (occurrence: US)
  Receive Date: 20130320
  Receipt Date: 20130425
  Transmission Date: 20140414
  Serious: Yes (Hospitalization, Other)
  Sender: FDA-Public Use
  Company Number: US-JNJFOC-20130305068

PATIENT
  Sex: Female
  Weight: 82.56 kg

DRUGS (14)
  1. REMICADE [Suspect]
     Indication: COLITIS MICROSCOPIC
     Route: 042
     Dates: start: 201210, end: 20121227
  2. REMICADE [Suspect]
     Indication: COLITIS MICROSCOPIC
     Route: 042
     Dates: start: 201007
  3. REMICADE [Suspect]
     Indication: COLITIS MICROSCOPIC
     Route: 042
     Dates: start: 2009
  4. REMICADE [Suspect]
     Indication: CROHN^S DISEASE
     Route: 042
     Dates: start: 201210, end: 20121227
  5. REMICADE [Suspect]
     Indication: CROHN^S DISEASE
     Route: 042
     Dates: start: 201007
  6. REMICADE [Suspect]
     Indication: CROHN^S DISEASE
     Route: 042
     Dates: start: 2009
  7. ONDANSETRON [Concomitant]
     Indication: NAUSEA
     Route: 065
     Dates: start: 2008
  8. PREDNISONE [Concomitant]
     Indication: CROHN^S DISEASE
     Route: 065
     Dates: start: 2008
  9. PREVACID [Concomitant]
     Indication: OESOPHAGITIS
     Route: 048
     Dates: start: 200804
  10. LONOX [Concomitant]
     Indication: DIARRHOEA
     Route: 048
     Dates: start: 2008
  11. VICODIN [Concomitant]
     Indication: PAIN
     Dosage: STRENGTH: 500 MG
     Route: 048
     Dates: start: 2008
  12. PREMARIN [Concomitant]
     Indication: HYSTERECTOMY
     Route: 065
     Dates: start: 201012
  13. HYDROCHLOROTHIAZIDE [Concomitant]
     Indication: NEPHROLITHIASIS
     Route: 065
     Dates: start: 2004
  14. TIZANIDINE [Concomitant]
     Indication: MUSCLE SPASMS
     Route: 065
     Dates: start: 2013

REACTIONS (28)
  - Uterine leiomyoma [Recovered/Resolved]
  - Ovarian cyst [Recovered/Resolved]
  - Adrenal insufficiency [Unknown]
  - Crohn^s disease [Recovering/Resolving]
  - Duodenal stenosis [Not Recovered/Not Resolved]
  - Weight decreased [Unknown]
  - Pain [Unknown]
  - Dehydration [Recovering/Resolving]
  - Blood potassium decreased [Recovering/Resolving]
  - Hypotension [Recovering/Resolving]
  - Pruritus [Recovered/Resolved]
  - Malaise [Recovered/Resolved]
  - Throat irritation [Recovered/Resolved]
  - Chronic sinusitis [Not Recovered/Not Resolved]
  - Urticaria [Unknown]
  - Eczema [Unknown]
  - Eye infection [Unknown]
  - Eye disorder [Unknown]
  - Blood sodium decreased [Unknown]
  - Chest discomfort [Recovered/Resolved]
  - Asthenia [Recovered/Resolved]
  - Delirium [Recovered/Resolved]
  - Feeling abnormal [Recovered/Resolved]
  - Nephrolithiasis [Recovered/Resolved]
  - Road traffic accident [Recovered/Resolved]
  - Drug ineffective [Not Recovered/Not Resolved]
  - Antibody test positive [Not Recovered/Not Resolved]
  - Infusion related reaction [Recovered/Resolved]
